FAERS Safety Report 7532874-X (Version None)
Quarter: 2011Q2

REPORT INFORMATION
  Report Type: 
  Country: None (occurrence: None)
  Receive Date: 20110608
  Receipt Date: 20110603
  Transmission Date: 20111010
  Serious: Yes (Hospitalization, Other)
  Sender: FDA-Public Use
  Company Number: US-PFIZER INC-2011061666

PATIENT
  Sex: Female

DRUGS (5)
  1. CHANTIX [Suspect]
     Indication: SMOKING CESSATION THERAPY
     Dosage: STARTER PACK
     Dates: start: 20090709, end: 20090806
  2. ATIVAN [Concomitant]
     Indication: ANXIETY
     Dosage: UNK
     Dates: start: 20080101
  3. LEXAPRO [Concomitant]
     Indication: BIPOLAR DISORDER
  4. LEXAPRO [Concomitant]
     Indication: DEPRESSION
     Dosage: UNK
     Dates: start: 20070101, end: 20110101
  5. ATIVAN [Concomitant]
     Indication: PANIC ATTACK

REACTIONS (10)
  - DEPRESSION [None]
  - BIPOLAR DISORDER [None]
  - INTENTIONAL OVERDOSE [None]
  - TREMOR [None]
  - ANXIETY [None]
  - INTENTIONAL SELF-INJURY [None]
  - INSOMNIA [None]
  - SUICIDE ATTEMPT [None]
  - MOOD SWINGS [None]
  - PANIC ATTACK [None]
